FAERS Safety Report 18093068 (Version 1)
Quarter: 2020Q3

REPORT INFORMATION
  Report Type: Report from Study
  Country: JP (occurrence: JP)
  Receive Date: 20200730
  Receipt Date: 20200730
  Transmission Date: 20201103
  Serious: Yes (Life-Threatening, Hospitalization, Other)
  Sender: FDA-Public Use
  Company Number: JP-JNJFOC-20200729665

PATIENT
  Age: 40 Year
  Sex: Male

DRUGS (12)
  1. XELJANZ [Suspect]
     Active Substance: TOFACITINIB CITRATE
     Indication: COLITIS ULCERATIVE
     Dosage: 10 MG, 2X/DAY
     Route: 048
     Dates: start: 20181226, end: 20190114
  2. ZINC. [Concomitant]
     Active Substance: ZINC
     Indication: ZINC DEFICIENCY
     Dates: start: 20181226
  3. PENTASA [Suspect]
     Active Substance: MESALAMINE
     Indication: COLITIS ULCERATIVE
     Dosage: 1 GRAM, QD
     Route: 054
     Dates: start: 20180905, end: 20190104
  4. BIO?THREE [Concomitant]
     Active Substance: HERBALS
     Indication: COLITIS ULCERATIVE
     Dosage: UNK
     Route: 065
     Dates: start: 20170419
  5. MAINTATE [Suspect]
     Active Substance: BISOPROLOL FUMARATE
     Indication: HYPERTENSION
     Dosage: 5 MILLIGRAM, QD
     Route: 048
     Dates: start: 20181212, end: 20190514
  6. IMURAN [Concomitant]
     Active Substance: AZATHIOPRINE
     Indication: COLITIS ULCERATIVE
     Dosage: UNK
     Route: 048
     Dates: start: 20160810, end: 20190104
  7. LAC?B [Concomitant]
     Active Substance: BIFIDOBACTERIUM SPP.
     Indication: COLITIS ULCERATIVE
     Dosage: UNK
     Route: 048
     Dates: start: 20170419
  8. LIALDA [Concomitant]
     Active Substance: MESALAMINE
     Indication: COLITIS ULCERATIVE
     Dosage: UNK
     Route: 048
     Dates: start: 20181017, end: 20190104
  9. URIADEC [Concomitant]
     Active Substance: TOPIROXOSTAT
     Dosage: UNK
     Route: 048
     Dates: start: 20181114, end: 20181212
  10. REMICADE [Suspect]
     Active Substance: INFLIXIMAB
     Indication: COLITIS ULCERATIVE
     Dosage: UNK
     Route: 042
  11. URIADEC [Concomitant]
     Active Substance: TOPIROXOSTAT
     Indication: HYPERURICAEMIA
     Dosage: UNK
     Route: 048
     Dates: start: 20181017
  12. PREDNISOLONE. [Suspect]
     Active Substance: PREDNISOLONE
     Indication: DERMATITIS
     Dosage: 40 MILLIGRAM, QD
     Route: 048
     Dates: start: 20160810, end: 20190104

REACTIONS (3)
  - Rectal perforation [Recovered/Resolved]
  - Peritonitis [Recovered/Resolved with Sequelae]
  - Drug ineffective [Unknown]

NARRATIVE: CASE EVENT DATE: 20190104
